FAERS Safety Report 17421209 (Version 2)
Quarter: 2021Q3

REPORT INFORMATION
  Report Type: Spontaneous
  Country: US (occurrence: US)
  Receive Date: 20200214
  Receipt Date: 20210722
  Transmission Date: 20211014
  Serious: Yes (Other)
  Sender: FDA-Public Use
  Company Number: US-TEVA-2020-US-1186660

PATIENT
  Age: 64 Year
  Sex: Female
  Weight: 70.37 kg

DRUGS (6)
  1. FOLGARD [Concomitant]
     Indication: ANTIINFLAMMATORY THERAPY
     Route: 065
  2. VALSARTAN. [Suspect]
     Active Substance: VALSARTAN
     Dosage: DOSAGE: 80 MG
     Route: 065
     Dates: start: 20160315, end: 20170113
  3. ACIPHEX [Concomitant]
     Active Substance: RABEPRAZOLE SODIUM
     Route: 065
  4. VALSARTAN. [Suspect]
     Active Substance: VALSARTAN
     Indication: HYPERTENSION
     Dosage: DOSAGE: 80 MG
     Route: 065
     Dates: start: 20150306, end: 20160125
  5. VALSARTAN AUROBINDO [Suspect]
     Active Substance: VALSARTAN
     Indication: HYPERTENSION
     Dosage: DOSAGE: 40 MG
     Route: 065
     Dates: start: 20170221, end: 20170522
  6. VALSARTAN. [Suspect]
     Active Substance: VALSARTAN
     Dosage: DOSAGE : 40 MG
     Route: 065
     Dates: start: 20161214, end: 20170314

REACTIONS (4)
  - Small intestine carcinoma stage II [Recovered/Resolved]
  - Gastric cancer stage II [Recovered/Resolved]
  - Anaemia [Unknown]
  - Neuropathy peripheral [Unknown]
